FAERS Safety Report 10987635 (Version 2)
Quarter: 2015Q2

REPORT INFORMATION
  Report Type: Spontaneous
  Country: US (occurrence: US)
  Receive Date: 20150404
  Receipt Date: 20150525
  Transmission Date: 20150821
  Serious: Yes (Other)
  Sender: FDA-Public Use
  Company Number: US-JNJFOC-20120902820

PATIENT

DRUGS (1)
  1. INFLIXIMAB, RECOMBINANT [Suspect]
     Active Substance: INFLIXIMAB
     Indication: SARCOIDOSIS
     Dosage: INFLIXIMAB STARTED AT 3-5 MG/KG AT WEEKS 0, 2, 6 AND THEN EVERY 6 TO 8 WEEKS
     Route: 042

REACTIONS (1)
  - Cutaneous sarcoidosis [Unknown]
